FAERS Safety Report 12073143 (Version 1)
Quarter: 2016Q1

REPORT INFORMATION
  Report Type: Spontaneous
  Country: US (occurrence: None)
  Receive Date: 20160211
  Receipt Date: 20160211
  Transmission Date: 20160526
  Serious: Yes (Life-Threatening, Hospitalization, Other)
  Sender: FDA-Public Use
  Company Number: None

PATIENT
  Age: 23 Year
  Sex: Female
  Weight: 68.04 kg

DRUGS (1)
  1. DEPO-PROVERA [Suspect]
     Active Substance: MEDROXYPROGESTERONE ACETATE
     Indication: CONTRACEPTION
     Dosage: ONE SHOT  EVERY 3 MONTHS

REACTIONS (7)
  - Vitamin D decreased [None]
  - Depression [None]
  - Therapy cessation [None]
  - Drug effect incomplete [None]
  - Ectopic pregnancy [None]
  - Abortion spontaneous [None]
  - Maternal exposure before pregnancy [None]
